FAERS Safety Report 10074939 (Version 2)
Quarter: 2014Q2

REPORT INFORMATION
  Report Type: Report from Study
  Country: JP (occurrence: JP)
  Receive Date: 20140414
  Receipt Date: 20140604
  Transmission Date: 20141212
  Serious: Yes (Hospitalization, Disabling)
  Sender: FDA-Public Use
  Company Number: JP-ROCHE-1381754

PATIENT
  Age: 76 Year
  Sex: Female

DRUGS (14)
  1. RITUXIMAB [Suspect]
     Indication: B-CELL LYMPHOMA
     Dosage: SINGLE
     Route: 042
     Dates: start: 20090609
  2. RITUXIMAB [Suspect]
     Route: 042
     Dates: start: 20090617
  3. ZEVALIN YTTRIUM [Suspect]
     Indication: B-CELL LYMPHOMA
     Dosage: 14.8 MBQ/KG
     Route: 042
     Dates: start: 20090617
  4. ZEVALIN INDIUM [Suspect]
     Indication: B-CELL LYMPHOMA
     Route: 042
     Dates: start: 20090609
  5. CYCLOPHOSPHAMIDE [Suspect]
     Indication: B-CELL LYMPHOMA
     Route: 065
     Dates: start: 19930816, end: 19940116
  6. CYTARABINE [Suspect]
     Indication: B-CELL LYMPHOMA
     Route: 065
  7. ETOPOSIDE [Suspect]
     Indication: B-CELL LYMPHOMA
     Route: 065
     Dates: start: 19950821, end: 19951102
  8. DEXAMETHASONE [Suspect]
     Indication: B-CELL LYMPHOMA
     Route: 065
     Dates: start: 19950821, end: 19951102
  9. IFOSFAMIDE [Suspect]
     Indication: B-CELL LYMPHOMA
     Route: 065
     Dates: start: 19950821, end: 19951102
  10. CARBOPLATIN [Suspect]
     Indication: B-CELL LYMPHOMA
     Route: 065
     Dates: start: 19950821, end: 19951102
  11. DOXORUBICIN [Suspect]
     Indication: B-CELL LYMPHOMA
     Route: 065
     Dates: start: 19930816, end: 19940116
  12. VINCRISTIN [Suspect]
     Indication: B-CELL LYMPHOMA
     Route: 065
     Dates: start: 19930816, end: 19940116
  13. PREDNISOLONE [Suspect]
     Indication: B-CELL LYMPHOMA
     Route: 065
     Dates: start: 19930816, end: 19940116
  14. CLADRIBINE [Suspect]
     Indication: B-CELL LYMPHOMA
     Route: 065
     Dates: start: 19950619, end: 19950718

REACTIONS (1)
  - Myelodysplastic syndrome [Not Recovered/Not Resolved]
